FAERS Safety Report 9790810 (Version 1)
Quarter: 2013Q4

REPORT INFORMATION
  Report Type: Spontaneous
  Country: US (occurrence: US)
  Receive Date: 20131231
  Receipt Date: 20131231
  Transmission Date: 20140711
  Serious: No
  Sender: FDA-Public Use
  Company Number: US-ASTRAZENECA-2013SE69084

PATIENT
  Age: 40 Year
  Sex: Male
  Weight: 74.8 kg

DRUGS (2)
  1. ZAFIRLUKAST [Suspect]
     Indication: ASTHMA
     Dosage: DAILY
     Route: 048
     Dates: start: 2012
  2. 2 OTHER MEDICATIONS [Concomitant]

REACTIONS (1)
  - Alopecia [Not Recovered/Not Resolved]
